FAERS Safety Report 15847244 (Version 2)
Quarter: 2019Q3

REPORT INFORMATION
  Report Type: Spontaneous
  Country: JP (occurrence: JP)
  Receive Date: 20190121
  Receipt Date: 20190717
  Transmission Date: 20191004
  Serious: Yes (Hospitalization)
  Sender: FDA-Public Use
  Company Number: JP-SUN PHARMACEUTICAL INDUSTRIES LTD-2019R1-196475

PATIENT
  Age: 79 Year
  Sex: Female
  Weight: 50.6 kg

DRUGS (3)
  1. HEPARIN [Suspect]
     Active Substance: HEPARIN SODIUM
     Indication: ANTICOAGULANT THERAPY
     Dosage: 15000 UNITS, DAILY
     Route: 042
  2. TICLOPIDINE [Suspect]
     Active Substance: TICLOPIDINE
     Indication: ANTICOAGULANT THERAPY
     Dosage: 200 MG
     Route: 065
  3. CILOSTAZOL. [Suspect]
     Active Substance: CILOSTAZOL
     Indication: ANTICOAGULANT THERAPY
     Dosage: 100 MG
     Route: 065

REACTIONS (1)
  - Haematoma muscle [Recovered/Resolved]
